FAERS Safety Report 8434000-1 (Version None)
Quarter: 2012Q2

REPORT INFORMATION
  Report Type: 
  Country: None (occurrence: None)
  Receive Date: 20120323
  Receipt Date: 20110210
  Transmission Date: 20120825
  Serious: Yes (Other)
  Sender: FDA-Public Use
  Company Number: 163-21880-11021646

PATIENT
  Age: 53 Year
  Sex: Female
  Weight: 108 kg

DRUGS (1)
  1. REVLIMID [Suspect]
     Indication: MULTIPLE MYELOMA
     Dosage: 25 MG, DAILY FOR 21 DAYS; EVERY 28 DAYS, PO
     Route: 048
     Dates: start: 20091210

REACTIONS (5)
  - DIARRHOEA [None]
  - CONSTIPATION [None]
  - HYPOKALAEMIA [None]
  - FATIGUE [None]
  - THROMBOSIS [None]
